FAERS Safety Report 25306708 (Version 1)
Quarter: 2025Q2

REPORT INFORMATION
  Report Type: Spontaneous
  Country: JP (occurrence: JP)
  Receive Date: 20250513
  Receipt Date: 20250513
  Transmission Date: 20250716
  Serious: Yes (Other)
  Sender: MYLAN
  Company Number: JP-MYLANLABS-2025M1038983

PATIENT
  Sex: Male

DRUGS (4)
  1. CELECOXIB [Suspect]
     Active Substance: CELECOXIB
     Indication: Pain
  2. CELECOXIB [Suspect]
     Active Substance: CELECOXIB
     Route: 048
  3. CELECOXIB [Suspect]
     Active Substance: CELECOXIB
     Route: 048
  4. CELECOXIB [Suspect]
     Active Substance: CELECOXIB

REACTIONS (2)
  - Urinary retention [Unknown]
  - Benign prostatic hyperplasia [Unknown]
